FAERS Safety Report 7837184-9 (Version None)
Quarter: 2011Q4

REPORT INFORMATION
  Report Type: 
  Country: None (occurrence: None)
  Receive Date: 20111024
  Receipt Date: 20110316
  Transmission Date: 20120403
  Serious: No
  Sender: FDA-Public Use
  Company Number: US-ABBOTT-11P-163-0712943-00

PATIENT
  Sex: Female
  Weight: 83.99 kg

DRUGS (9)
  1. ALBUTEROL [Concomitant]
     Indication: ASTHMA
  2. FLEXERIL [Concomitant]
     Indication: MYALGIA
  3. FLONASE [Concomitant]
     Indication: ASTHMA
  4. ASTROPRO [Concomitant]
     Indication: ASTHMA
  5. HYDROCODONE BITARTRATE [Concomitant]
     Indication: PAIN
  6. LUPRON DEPOT [Suspect]
     Indication: UTERINE LEIOMYOMA
     Dates: start: 20110224
  7. ADVAIR DISKUS 100/50 [Concomitant]
     Indication: ASTHMA
  8. AMLODIPINE [Concomitant]
     Indication: HYPERTENSION
  9. ZONEGRAN [Concomitant]
     Indication: MIGRAINE

REACTIONS (4)
  - ASTHMA [None]
  - CHEST DISCOMFORT [None]
  - PAIN IN EXTREMITY [None]
  - BONE DISORDER [None]
